FAERS Safety Report 8346499-X (Version None)
Quarter: 2012Q2

REPORT INFORMATION
  Report Type: 
  Country: None (occurrence: None)
  Receive Date: 20120507
  Receipt Date: 20120507
  Transmission Date: 20120825
  Serious: Yes (Hospitalization)
  Sender: FDA-Public Use
  Company Number: None

PATIENT
  Sex: Male

DRUGS (1)
  1. ZYTIGA [Suspect]
     Dosage: 1000MG DAILY ORAL
     Route: 048
     Dates: start: 20120306

REACTIONS (2)
  - URINARY RETENTION [None]
  - DEVICE OCCLUSION [None]
